FAERS Safety Report 5647658-7 (Version None)
Quarter: 2008Q1

REPORT INFORMATION
  Report Type: 
  Country: None (occurrence: None)
  Receive Date: 20080228
  Receipt Date: 20080215
  Transmission Date: 20080703
  Serious: Yes (Hospitalization)
  Sender: FDA-Public Use
  Company Number: 2008-01413

PATIENT
  Age: 38 Week
  Sex: Male

DRUGS (1)
  1. FIORINAL W/CODEINE [Suspect]
     Indication: COUGH
     Dosage: TRANSPLACENTAL
     Route: 064

REACTIONS (4)
  - CEREBRAL INFARCTION [None]
  - CONVULSION NEONATAL [None]
  - DRUG EXPOSURE DURING PREGNANCY [None]
  - DRUG WITHDRAWAL SYNDROME NEONATAL [None]
